FAERS Safety Report 9255220 (Version 2)
Quarter: 2013Q2

REPORT INFORMATION
  Report Type: Spontaneous
  Country: GR (occurrence: GR)
  Receive Date: 20130425
  Receipt Date: 20130429
  Transmission Date: 20140414
  Serious: Yes (Other)
  Sender: FDA-Public Use
  Company Number: GR-TEVA-400819ISR

PATIENT
  Age: 78 Year
  Sex: Female

DRUGS (5)
  1. CISPLATIN [Suspect]
     Indication: ADRENAL GLAND CANCER
  2. ADRIAMYCIN [Concomitant]
  3. ETOPOSID [Concomitant]
  4. MITOTANE [Concomitant]
  5. HYDROCORTISONE [Concomitant]

REACTIONS (6)
  - Retinal detachment [Recovering/Resolving]
  - Deafness neurosensory [Unknown]
  - Atrial fibrillation [Unknown]
  - Superior vena cava syndrome [Unknown]
  - Metastases to peritoneum [Unknown]
  - Off label use [Unknown]
